FAERS Safety Report 5369210-3 (Version None)
Quarter: 2007Q2

REPORT INFORMATION
  Report Type: 
  Country: None (occurrence: None)
  Receive Date: 20070625
  Receipt Date: 20070614
  Transmission Date: 20071010
  Serious: Yes (Other)
  Sender: FDA-Public Use
  Company Number: GB-ASTRAZENECA-2007GB01256

PATIENT
  Age: 60 Year
  Sex: Female
  Weight: 70 kg

DRUGS (3)
  1. PULMICORT [Suspect]
     Indication: COUGH
     Route: 055
     Dates: start: 20070515, end: 20070519
  2. PULMICORT [Suspect]
     Indication: INFLAMMATION
     Route: 055
     Dates: start: 20070515, end: 20070519
  3. PREDNISOLONE [Concomitant]
     Indication: COUGH
     Route: 048
     Dates: start: 20070426, end: 20070517

REACTIONS (1)
  - WHEEZING [None]
